FAERS Safety Report 8144865-9 (Version None)
Quarter: 2012Q1

REPORT INFORMATION
  Report Type: 
  Country: None (occurrence: None)
  Receive Date: 20120217
  Receipt Date: 20120214
  Transmission Date: 20120608
  Serious: Yes (Other)
  Sender: FDA-Public Use
  Company Number: US-GLAXOSMITHKLINE-A0965896A

PATIENT
  Age: 93 Year
  Sex: Female

DRUGS (1)
  1. VALACYCLOVIR [Suspect]
     Indication: HERPES ZOSTER
     Route: 048
     Dates: start: 20120126, end: 20120130

REACTIONS (3)
  - EMOTIONAL DISTRESS [None]
  - APPETITE DISORDER [None]
  - DEMENTIA [None]
